FAERS Safety Report 7127845-1 (Version None)
Quarter: 2010Q4

REPORT INFORMATION
  Report Type: 
  Country: None (occurrence: None)
  Receive Date: 20101029
  Receipt Date: 20100708
  Transmission Date: 20110411
  Serious: No
  Sender: FDA-Public Use
  Company Number: US-003156

PATIENT
  Sex: Male
  Weight: 86.637 kg

DRUGS (5)
  1. FIRMAGON [Suspect]
     Indication: PROSTATE CANCER METASTATIC
     Dosage: 240 MG 1X SUBCUTANEOUS, 80 MG 1X/MONTH SUBCUTANEOUS
     Route: 058
     Dates: start: 20100401, end: 20100401
  2. FIRMAGON [Suspect]
     Indication: PROSTATE CANCER METASTATIC
     Dosage: 240 MG 1X SUBCUTANEOUS, 80 MG 1X/MONTH SUBCUTANEOUS
     Route: 058
     Dates: start: 20100501, end: 20100601
  3. PREDNISONE [Concomitant]
  4. M.V.I. [Concomitant]
  5. CALCIUM WITH VITAMIN D [Concomitant]

REACTIONS (1)
  - FREE PROSTATE-SPECIFIC ANTIGEN INCREASED [None]
